FAERS Safety Report 9641991 (Version 1)
Quarter: 2013Q4

REPORT INFORMATION
  Report Type: Spontaneous
  Country: US (occurrence: US)
  Receive Date: 20131023
  Receipt Date: 20131023
  Transmission Date: 20140711
  Serious: No
  Sender: FDA-Public Use
  Company Number: US-TEVA-439604USA

PATIENT
  Age: 62 Year
  Sex: Female
  Weight: 72.64 kg

DRUGS (2)
  1. NUVIGIL [Suspect]
     Indication: SOMNOLENCE
     Dosage: QD
     Route: 048
  2. WELLBUTRIN [Concomitant]
     Indication: DEPRESSION

REACTIONS (4)
  - Aggression [Not Recovered/Not Resolved]
  - Mood swings [Not Recovered/Not Resolved]
  - Abdominal discomfort [Not Recovered/Not Resolved]
  - Off label use [Unknown]
